FAERS Safety Report 8627447 (Version 3)
Quarter: 2013Q1

REPORT INFORMATION
  Report Type: Report from Study
  Country: FR (occurrence: FR)
  Receive Date: 20120621
  Receipt Date: 20130304
  Transmission Date: 20140127
  Serious: Yes (Hospitalization)
  Sender: FDA-Public Use
  Company Number: FR-MPIJNJ-2012-01247

PATIENT
  Age: 43 Year
  Sex: Male

DRUGS (12)
  1. NEFOPAM [Concomitant]
     Indication: INFECTION
     Dosage: 20 MG, UNK
     Route: 048
     Dates: start: 20120219
  2. TAZOCILLINE [Concomitant]
     Indication: INFECTION
     Dosage: 4 G, UNK
     Route: 042
     Dates: start: 20120219
  3. GENTAMICIN [Concomitant]
     Indication: INFECTION
     Dosage: 380 MG, UNK
     Route: 042
     Dates: start: 20120219
  4. VANIDENE [Concomitant]
     Indication: INFECTION
     Dosage: 1000 MG, UNK
     Route: 042
     Dates: start: 20120219
  5. VELCADE [Suspect]
     Indication: PLASMA CELL MYELOMA
     Dosage: 2 MG, UNK
     Route: 065
     Dates: start: 20110816, end: 20120216
  6. VELCADE [Suspect]
     Dosage: 1 MG/M2, UNK
     Route: 065
     Dates: start: 20120223
  7. REVLIMID [Suspect]
     Indication: PLASMA CELL MYELOMA
     Dosage: 25 MG, UNK
     Route: 065
     Dates: start: 20110816, end: 20120218
  8. REVLIMID [Suspect]
     Dosage: 10 UNK, UNK
     Route: 065
     Dates: start: 20120402
  9. DEXAMETHASONE [Suspect]
     Indication: PLASMA CELL MYELOMA
     Dosage: 20 MG, UNK
     Route: 065
     Dates: start: 20110816, end: 20120216
  10. BACTRIN [Concomitant]
     Indication: INFECTION PROPHYLAXIS
     Dosage: UNK
     Dates: start: 20110816
  11. AMOXICILLINE                       /00249602/ [Concomitant]
     Indication: DEVICE RELATED INFECTION
     Dosage: 1 G, UNK
     Route: 048
     Dates: start: 20120102
  12. PREGABALIN [Concomitant]
     Indication: PERIPHERAL SENSORY NEUROPATHY
     Dosage: 7.5 MG, BID
     Route: 048
     Dates: start: 20111219

REACTIONS (5)
  - Atrial thrombosis [Recovered/Resolved]
  - Infection [Recovered/Resolved]
  - Feeling abnormal [None]
  - Pain [None]
  - Plasma cell myeloma [None]
